FAERS Safety Report 6886587 (Version 4)
Quarter: 2013Q2

REPORT INFORMATION
  Report Type: Spontaneous
  Country: DE (occurrence: DE)
  Receive Date: 20090120
  Receipt Date: 20130426
  Transmission Date: 20140414
  Serious: Yes (Life-Threatening, Hospitalization, Other)
  Sender: FDA-Public Use
  Company Number: DE-BRISTOL-MYERS SQUIBB COMPANY-14471114

PATIENT
  Sex: Male
  Weight: 92 kg

DRUGS (4)
  1. CAPTOPRIL + HCTZ [Suspect]
     Indication: HYPERTENSION
     Dosage: 1 DOSAGE FORM= 25/12.5MG?FORMULATION: TABLET
     Route: 048
     Dates: start: 20080919, end: 20081007
  2. METFORMIN HCL TABS [Suspect]
     Indication: TYPE 2 DIABETES MELLITUS
     Route: 048
     Dates: start: 20080929, end: 20081009
  3. IBUPROFEN [Concomitant]
     Indication: PAIN
     Dosage: FORMULATION: COATED TABLET
     Route: 048
     Dates: start: 20080715, end: 200810
  4. TRAMAL [Concomitant]
     Indication: BACK PAIN
     Dosage: FORMULATION: HARD CAPSULE
     Route: 048
     Dates: start: 20081007, end: 20081007

REACTIONS (2)
  - Thrombotic thrombocytopenic purpura [Not Recovered/Not Resolved]
  - Haemolytic anaemia [None]
